FAERS Safety Report 16100590 (Version 1)
Quarter: 2019Q1

REPORT INFORMATION
  Report Type: Spontaneous
  Country: US (occurrence: US)
  Receive Date: 20190321
  Receipt Date: 20190321
  Transmission Date: 20190418
  Serious: Yes (Other)
  Sender: FDA-Public Use
  Company Number: US-SA-2019SA073563

PATIENT
  Age: 71 Year
  Sex: Male

DRUGS (15)
  1. FUROSEMIDE. [Concomitant]
     Active Substance: FUROSEMIDE
  2. TRULICITY [Concomitant]
     Active Substance: DULAGLUTIDE
  3. IMDUR [Concomitant]
     Active Substance: ISOSORBIDE MONONITRATE
  4. TOPROL XL [Concomitant]
     Active Substance: METOPROLOL SUCCINATE
  5. ASPIRIN [ACETYLSALICYLIC ACID] [Concomitant]
     Active Substance: ASPIRIN
  6. GABAPENTIN. [Concomitant]
     Active Substance: GABAPENTIN
  7. GLIPIZIDE. [Concomitant]
     Active Substance: GLIPIZIDE
  8. ALLOPURINOL. [Concomitant]
     Active Substance: ALLOPURINOL
  9. FISH OIL [Concomitant]
     Active Substance: FISH OIL
  10. EFFIENT [Concomitant]
     Active Substance: PRASUGREL HYDROCHLORIDE
  11. PRALUENT [Suspect]
     Active Substance: ALIROCUMAB
     Indication: TYPE V HYPERLIPIDAEMIA
     Dosage: 75 MG, QOW
     Route: 058
     Dates: start: 20190125
  12. NITROSTAT [Concomitant]
     Active Substance: NITROGLYCERIN
     Dosage: UNK
  13. TRAMADOL. [Concomitant]
     Active Substance: TRAMADOL
  14. KLOR-CON [Concomitant]
     Active Substance: POTASSIUM CHLORIDE
  15. CYANOCOBALAMIN. [Concomitant]
     Active Substance: CYANOCOBALAMIN

REACTIONS (1)
  - Parkinson^s disease [Unknown]

NARRATIVE: CASE EVENT DATE: 20190313
